FAERS Safety Report 8976173 (Version 2)
Quarter: 2013Q1

REPORT INFORMATION
  Report Type: Spontaneous
  Country: JP (occurrence: JP)
  Receive Date: 20121220
  Receipt Date: 20130103
  Transmission Date: 20140127
  Serious: Yes (Hospitalization)
  Sender: FDA-Public Use
  Company Number: JP-ELI_LILLY_AND_COMPANY-JP201212003765

PATIENT
  Age: 68 Year
  Sex: Male

DRUGS (3)
  1. ALIMTA [Suspect]
     Indication: LUNG ADENOCARCINOMA STAGE III
     Route: 042
  2. CARBOPLATIN [Concomitant]
     Indication: LUNG ADENOCARCINOMA STAGE III
  3. BEVACIZUMAB [Concomitant]
     Indication: LUNG ADENOCARCINOMA STAGE III

REACTIONS (1)
  - Large intestine perforation [Unknown]
